FAERS Safety Report 12001827 (Version 3)
Quarter: 2016Q2

REPORT INFORMATION
  Report Type: Spontaneous
  Country: US (occurrence: US)
  Receive Date: 20160204
  Receipt Date: 20160427
  Transmission Date: 20160815
  Serious: Yes (Death, Hospitalization, Other)
  Sender: FDA-Public Use
  Company Number: US-PFIZER INC-2016063180

PATIENT
  Age: 80 Year
  Sex: Male
  Weight: 79 kg

DRUGS (7)
  1. OXYCONTIN [Concomitant]
     Active Substance: OXYCODONE HYDROCHLORIDE
     Indication: PAIN
     Dosage: 15 MG, 2X/DAY (EVERY 12 HOURS)
     Route: 048
  2. ALLOPURINOL. [Concomitant]
     Active Substance: ALLOPURINOL
     Dosage: 100 MG, 1X/DAY
     Route: 048
     Dates: start: 201507, end: 20160131
  3. INDOMETHACIN. [Concomitant]
     Active Substance: INDOMETHACIN
     Indication: NEURALGIA
     Dosage: 25 MG, 1X/DAY,AS NEEDED
     Route: 048
     Dates: start: 201507, end: 20160131
  4. NEURONTIN [Concomitant]
     Active Substance: GABAPENTIN
     Indication: NEURALGIA
     Dosage: 200 MG, 3X/DAY
     Route: 048
     Dates: start: 201507
  5. PROAIR HFA [Concomitant]
     Active Substance: ALBUTEROL SULFATE
     Indication: DYSPNOEA
     Dosage: UNK
  6. IBRANCE [Suspect]
     Active Substance: PALBOCICLIB
     Indication: NON-SMALL CELL LUNG CANCER
     Dosage: 125 MG, CYCLIC (ONCE DAILY, 21 DAYS ON/7 DAYS OFF)
     Route: 048
     Dates: start: 20160108, end: 20160128
  7. OXYCODONE [Concomitant]
     Active Substance: OXYCODONE
     Indication: PAIN
     Dosage: 5 MG, 1-2, EVERY 4 HOURS, AS NEEDED

REACTIONS (6)
  - Non-small cell lung cancer [Not Recovered/Not Resolved]
  - Product use issue [Unknown]
  - Pulmonary embolism [Unknown]
  - Disease progression [Not Recovered/Not Resolved]
  - Death [Fatal]
  - Thrombosis [Unknown]

NARRATIVE: CASE EVENT DATE: 20160119
